FAERS Safety Report 7132412-X (Version None)
Quarter: 2010Q4

REPORT INFORMATION
  Report Type: 
  Country: None (occurrence: None)
  Receive Date: 20101130
  Receipt Date: 20101130
  Transmission Date: 20110411
  Serious: Yes (Other)
  Sender: FDA-Public Use
  Company Number: None

PATIENT
  Age: 32 Year
  Sex: Male
  Weight: 80 kg

DRUGS (1)
  1. PAROXETINE HCL [Suspect]

REACTIONS (3)
  - ANAESTHESIA [None]
  - GENITAL DISORDER MALE [None]
  - LIBIDO DECREASED [None]
